FAERS Safety Report 20127643 (Version 1)
Quarter: 2021Q4

REPORT INFORMATION
  Report Type: Spontaneous
  Country: US (occurrence: US)
  Receive Date: 20211129
  Receipt Date: 20211129
  Transmission Date: 20220303
  Serious: No
  Sender: FDA-Public Use
  Company Number: US-SA-SAC20211124000365

PATIENT
  Sex: Male

DRUGS (3)
  1. FABRAZYME [Suspect]
     Active Substance: AGALSIDASE BETA
     Indication: Fabry^s disease
     Dosage: 60 MG, QOW
     Route: 041
     Dates: start: 20200402
  2. PREDNISONE [Concomitant]
     Active Substance: PREDNISONE
     Dosage: 40MG
  3. TYLENOL [Concomitant]
     Active Substance: ACETAMINOPHEN

REACTIONS (7)
  - Discomfort [Unknown]
  - Feeling abnormal [Unknown]
  - Illness [Unknown]
  - Body temperature fluctuation [Unknown]
  - Tinnitus [Unknown]
  - Chills [Unknown]
  - Hypoaesthesia [Unknown]
